FAERS Safety Report 20965163 (Version 1)
Quarter: 2022Q2

REPORT INFORMATION
  Report Type: Report from Study
  Country: US (occurrence: US)
  Receive Date: 20220616
  Receipt Date: 20220616
  Transmission Date: 20220720
  Serious: Yes (Other)
  Sender: FDA-Public Use
  Company Number: US-ACADIA PHARMACEUTICALS INC.-ACA-2022-PIM-001985

PATIENT
  Age: 73 Year
  Sex: Female

DRUGS (10)
  1. NUPLAZID [Suspect]
     Active Substance: PIMAVANSERIN TARTRATE
     Indication: Parkinson^s disease psychosis
     Dosage: 34 MILLIGRAM, QD
     Route: 048
  2. NUPLAZID [Suspect]
     Active Substance: PIMAVANSERIN TARTRATE
     Dosage: 34 MILLIGRAM, QD
     Route: 048
     Dates: start: 202206
  3. CARBIDOPA\LEVODOPA [Concomitant]
     Active Substance: CARBIDOPA\LEVODOPA
  4. ELIQUIS [Concomitant]
     Active Substance: APIXABAN
  5. MIRTAZAPINE [Concomitant]
     Active Substance: MIRTAZAPINE
  6. VITAMIN D NOS [Concomitant]
     Active Substance: VITAMIN D NOS
  7. ASPIRIN [Concomitant]
     Active Substance: ASPIRIN
  8. DONEPEZIL [Concomitant]
     Active Substance: DONEPEZIL
  9. MEMANTINE [Concomitant]
     Active Substance: MEMANTINE
  10. WELLBUTRIN [Concomitant]
     Active Substance: BUPROPION HYDROCHLORIDE

REACTIONS (2)
  - Syncope [Not Recovered/Not Resolved]
  - Product dose omission issue [Recovered/Resolved]

NARRATIVE: CASE EVENT DATE: 20220425
